FAERS Safety Report 16818091 (Version 1)
Quarter: 2019Q3

REPORT INFORMATION
  Report Type: Report from Study
  Country: ES (occurrence: ES)
  Receive Date: 20190917
  Receipt Date: 20190917
  Transmission Date: 20191005
  Serious: Yes (Death, Hospitalization)
  Sender: FDA-Public Use
  Company Number: ES-MYLANLABS-2019M1086791

PATIENT
  Age: 78 Year
  Sex: Female

DRUGS (6)
  1. LORMETAZEPAM [Concomitant]
     Active Substance: LORMETAZEPAM
     Indication: ANXIETY
     Dosage: 1 MILLIGRAM, QD
     Route: 048
     Dates: start: 2017, end: 20181220
  2. OMEPRAZOL                          /00661201/ [Concomitant]
     Active Substance: OMEPRAZOLE
     Indication: PROPHYLAXIS
     Dosage: 20 MILLIGRAM, QD
     Route: 048
     Dates: start: 2017, end: 20181230
  3. LOSARTAN. [Concomitant]
     Active Substance: LOSARTAN
     Indication: HYPERTENSION
     Dosage: 25 MILLIGRAM, QD
     Route: 048
     Dates: start: 201712, end: 20181230
  4. SIMVASTATINA [Concomitant]
     Active Substance: SIMVASTATIN
     Indication: DYSLIPIDAEMIA
     Dosage: 20 MILLIGRAM, QD
     Route: 048
     Dates: start: 2013, end: 20181230
  5. SERTRALINE [Suspect]
     Active Substance: SERTRALINE HYDROCHLORIDE
     Indication: DEPRESSION
     Dosage: 50 MILLIGRAM, QD
     Route: 048
     Dates: start: 2017, end: 20181230
  6. TROMALYT [Interacting]
     Active Substance: ASPIRIN
     Indication: THROMBOSIS
     Dosage: 150 MILLIGRAM, QD
     Route: 048
     Dates: start: 2017, end: 20181230

REACTIONS (2)
  - Haemorrhage intracranial [Fatal]
  - Drug interaction [Unknown]

NARRATIVE: CASE EVENT DATE: 20181229
